FAERS Safety Report 9328831 (Version 1)
Quarter: 2013Q2

REPORT INFORMATION
  Report Type: Spontaneous
  Country: US (occurrence: US)
  Receive Date: 20130604
  Receipt Date: 20130604
  Transmission Date: 20140414
  Serious: No
  Sender: FDA-Public Use
  Company Number: US-SANOFI-AVENTIS-2013SA016963

PATIENT
  Age: 52 Year
  Sex: Male

DRUGS (6)
  1. LANTUS [Suspect]
     Indication: TYPE 2 DIABETES MELLITUS
     Dosage: DOSE:30 UNIT(S)
     Route: 051
  2. LANTUS SOLOSTAR [Suspect]
     Route: 051
  3. SOLOSTAR [Suspect]
  4. HUMALOG [Concomitant]
  5. NOVOLOG [Concomitant]
  6. LEVEMIR [Concomitant]

REACTIONS (4)
  - Blood glucose increased [Unknown]
  - Expired drug administered [Unknown]
  - Diplopia [Unknown]
  - Headache [Unknown]
